FAERS Safety Report 5081907-1 (Version None)
Quarter: 2006Q3

REPORT INFORMATION
  Report Type: 
  Country: None (occurrence: None)
  Receive Date: 20060816
  Receipt Date: 20060601
  Transmission Date: 20061208
  Serious: Yes (Disabling)
  Sender: FDA-Public Use
  Company Number: DE-BAYER-200610747BVD

PATIENT
  Sex: Male

DRUGS (4)
  1. LEVITRA [Suspect]
     Indication: DRUG USE FOR UNKNOWN INDICATION
     Route: 048
     Dates: start: 20040902, end: 20040902
  2. UROXATRAL [Concomitant]
  3. TARKA [Concomitant]
  4. ALLOPURINOL [Concomitant]

REACTIONS (8)
  - AMAUROSIS FUGAX [None]
  - ARTERIAL THROMBOSIS [None]
  - BLINDNESS UNILATERAL [None]
  - BLOOD PRESSURE INCREASED [None]
  - DIZZINESS [None]
  - HEADACHE [None]
  - RETINAL ARTERY OCCLUSION [None]
  - VERTIGO [None]
